FAERS Safety Report 10066200 (Version 1)
Quarter: 2014Q2

REPORT INFORMATION
  Report Type: Report from Study
  Country: US (occurrence: US)
  Receive Date: 20140408
  Receipt Date: 20140408
  Transmission Date: 20141212
  Serious: Yes (Hospitalization)
  Sender: FDA-Public Use
  Company Number: US-AMGEN INC.-USACT2014023969

PATIENT
  Age: 11 Year
  Sex: Female

DRUGS (1)
  1. PANITUMUMAB [Suspect]
     Indication: NEOPLASM
     Dosage: 280 MG, Q2WK
     Route: 042
     Dates: start: 20140325

REACTIONS (1)
  - Hypoxia [Recovering/Resolving]
